FAERS Safety Report 8610289-0 (Version None)
Quarter: 2012Q3

REPORT INFORMATION
  Report Type: 
  Country: None (occurrence: None)
  Receive Date: 20120822
  Receipt Date: 20120813
  Transmission Date: 20120928
  Serious: Yes (Other)
  Sender: FDA-Public Use
  Company Number: IL-ACCORD-014419

PATIENT
  Age: 21 Year
  Sex: Male

DRUGS (3)
  1. ETOPOSIDE [Suspect]
     Indication: SEMINOMA
     Dosage: GIVEN ON DAYS 1, 3, AND 5
     Route: 042
  2. PEGFILGRASTIM [Concomitant]
     Route: 058
  3. CISPLATIN [Suspect]
     Indication: SEMINOMA
     Dosage: GIVEN ON DAYS 1, 3, AND 5

REACTIONS (2)
  - PSEUDOMONAS INFECTION [None]
  - OFF LABEL USE [None]
